FAERS Safety Report 6711114-5 (Version None)
Quarter: 2010Q2

REPORT INFORMATION
  Report Type: 
  Country: None (occurrence: None)
  Receive Date: 20100505
  Receipt Date: 20100427
  Transmission Date: 20101027
  Serious: Yes (Hospitalization)
  Sender: FDA-Public Use
  Company Number: PHHO2010FR05589

PATIENT
  Sex: Female
  Weight: 49 kg

DRUGS (4)
  1. AEB071 AEB+GELCAP [Suspect]
     Indication: RENAL TRANSPLANT
     Dosage: 200 MG, BID
     Route: 048
     Dates: start: 20100115, end: 20100412
  2. CERTICAN [Suspect]
     Indication: RENAL TRANSPLANT
     Dosage: 3.25 MG, BID
     Route: 048
     Dates: start: 20100115, end: 20100412
  3. IRBESARTAN [Concomitant]
  4. RANIPLEX [Concomitant]

REACTIONS (4)
  - BLOOD CREATININE INCREASED [None]
  - DRUG INEFFECTIVE [None]
  - KIDNEY TRANSPLANT REJECTION [None]
  - PROTEINURIA [None]
